FAERS Safety Report 10379956 (Version 2)
Quarter: 2014Q3

REPORT INFORMATION
  Report Type: Spontaneous
  Country: US (occurrence: US)
  Receive Date: 20140813
  Receipt Date: 20140813
  Transmission Date: 20150326
  Serious: Yes (Other)
  Sender: FDA-Public Use
  Company Number: US-ACCORD-025224

PATIENT
  Age: 2 Year
  Sex: Male

DRUGS (2)
  1. LIDOCAINE. [Concomitant]
     Active Substance: LIDOCAINE
     Dosage: 0.25 ML OF 1% LIDOCAINE
     Route: 061
  2. CLONAZEPAM. [Suspect]
     Active Substance: CLONAZEPAM

REACTIONS (5)
  - Toxicity to various agents [Recovered/Resolved]
  - Unresponsive to stimuli [Recovered/Resolved]
  - Ataxia [Recovered/Resolved]
  - Drooling [Recovered/Resolved]
  - Accidental exposure to product [Unknown]
